FAERS Safety Report 17091006 (Version 1)
Quarter: 2019Q4

REPORT INFORMATION
  Report Type: Report from Study
  Country: VN (occurrence: VN)
  Receive Date: 20191129
  Receipt Date: 20191129
  Transmission Date: 20200122
  Serious: Yes (Other)
  Sender: FDA-Public Use
  Company Number: VN-ROCHE-2477150

PATIENT

DRUGS (5)
  1. CYCLOSPORINE. [Suspect]
     Active Substance: CYCLOSPORINE
     Indication: RENAL TRANSPLANT
     Route: 065
  2. FK 506 [Suspect]
     Active Substance: TACROLIMUS
     Indication: RENAL TRANSPLANT
     Route: 065
  3. AZATHIOPRINE. [Suspect]
     Active Substance: AZATHIOPRINE
     Indication: RENAL TRANSPLANT
     Route: 065
  4. MYCOPHENOLATE MOFETIL. [Suspect]
     Active Substance: MYCOPHENOLATE MOFETIL
     Indication: RENAL TRANSPLANT
     Route: 065
  5. MYCOPHENOLIC ACID. [Suspect]
     Active Substance: MYCOPHENOLIC ACID
     Indication: RENAL TRANSPLANT
     Route: 065

REACTIONS (23)
  - Lymphoma [Unknown]
  - Transplant rejection [Unknown]
  - Epstein-Barr virus infection [Unknown]
  - Renal disorder [Unknown]
  - Uterine cancer [Unknown]
  - Kaposi^s sarcoma [Unknown]
  - Hepatitis B [Unknown]
  - Hepatitis C [Unknown]
  - Cytomegalovirus infection [Unknown]
  - Transitional cell carcinoma [Unknown]
  - Hepatic cancer [Unknown]
  - Metastases to spine [Unknown]
  - Dyslipidaemia [Unknown]
  - Renal cancer [Unknown]
  - Breast cancer [Unknown]
  - Gastric cancer [Unknown]
  - Colon cancer [Unknown]
  - Diabetes mellitus [Unknown]
  - Skin cancer [Unknown]
  - Cardiovascular disorder [Unknown]
  - Lung neoplasm malignant [Unknown]
  - Cervix carcinoma [Unknown]
  - Tongue neoplasm malignant stage unspecified [Unknown]
